FAERS Safety Report 5020162-5 (Version None)
Quarter: 2006Q2

REPORT INFORMATION
  Report Type: 
  Country: None (occurrence: None)
  Receive Date: 20060602
  Receipt Date: 20060517
  Transmission Date: 20061013
  Serious: Yes (Life-Threatening, Hospitalization)
  Sender: FDA-Public Use
  Company Number: FR_050306079

PATIENT
  Age: 73 Year
  Sex: Female
  Weight: 79 kg

DRUGS (10)
  1. TERIPARATIDE (TERIPARATIDE) PEN-DISPOSABLE [Suspect]
     Indication: OSTEOPOROSIS
     Dosage: 20 UG, DAILY (1/D),  SUBCUTANEOUS
     Route: 058
     Dates: start: 20031006, end: 20041004
  2. RALOXIFENE HCL [Suspect]
     Indication: OSTEOPOROSIS
     Dosage: 60 MG, DAILY (1/D); ORAL
     Route: 048
     Dates: start: 20041005, end: 20050301
  3. TENORMIN [Concomitant]
  4. FLECAINIDE ACETATE [Concomitant]
  5. PROPOFOL [Concomitant]
  6. IBUPROFENE EG (IBUPROGEN) [Concomitant]
  7. SIMVASTATIN [Concomitant]
  8. OMEPRAZOLE [Concomitant]
  9. SYMBICORT [Concomitant]
  10. FUROSEMIDE [Concomitant]

REACTIONS (6)
  - DIAPHRAGMATIC PARALYSIS [None]
  - GOITRE [None]
  - METASTASES TO LYMPH NODES [None]
  - PAPILLARY THYROID CANCER [None]
  - PLEURAL EFFUSION [None]
  - PLEURISY [None]
